FAERS Safety Report 25384279 (Version 4)
Quarter: 2025Q3

REPORT INFORMATION
  Report Type: Spontaneous
  Country: RS (occurrence: RS)
  Receive Date: 20250602
  Receipt Date: 20250701
  Transmission Date: 20251021
  Serious: Yes (Other)
  Sender: ABBVIE
  Company Number: RS-ABBVIE-6305973

PATIENT
  Sex: Female

DRUGS (5)
  1. BOTOX [Suspect]
     Active Substance: ONABOTULINUMTOXINA
     Indication: Skin wrinkling
     Route: 065
     Dates: start: 20250310, end: 20250310
  2. Flormidal [Concomitant]
     Indication: General anaesthesia
     Route: 042
     Dates: start: 20250310, end: 20250310
  3. CONTROLOC [Concomitant]
     Active Substance: PANTOPRAZOLE SODIUM
     Indication: General anaesthesia
     Route: 042
     Dates: start: 202503, end: 202503
  4. CONTROLOC [Concomitant]
     Active Substance: PANTOPRAZOLE SODIUM
     Indication: General anaesthesia
     Route: 042
     Dates: start: 20250310, end: 20250310
  5. PROPOFOL [Concomitant]
     Active Substance: PROPOFOL
     Indication: General anaesthesia
     Route: 042
     Dates: start: 20250310, end: 20250310

REACTIONS (12)
  - Anaphylactic shock [Recovered/Resolved]
  - Hypersensitivity [Recovering/Resolving]
  - Erythema [Recovered/Resolved]
  - Swelling face [Recovered/Resolved]
  - Skin hypertrophy [Recovered/Resolved]
  - Muscle spasms [Recovered/Resolved]
  - Urticaria [Recovered/Resolved]
  - Dyspnoea [Unknown]
  - Pruritus [Recovered/Resolved]
  - Sensory disturbance [Unknown]
  - Hypoaesthesia [Recovered/Resolved]
  - Tongue discomfort [Not Recovered/Not Resolved]

NARRATIVE: CASE EVENT DATE: 20250101
